FAERS Safety Report 5527471-1 (Version None)
Quarter: 2007Q4

REPORT INFORMATION
  Report Type: 
  Country: None (occurrence: None)
  Receive Date: 20071128
  Receipt Date: 20071121
  Transmission Date: 20080405
  Serious: Yes (Other)
  Sender: FDA-Public Use
  Company Number: PHRM2007FR02631

PATIENT
  Sex: Male

DRUGS (2)
  1. EZETROL [Concomitant]
     Route: 048
  2. LESCOL [Suspect]
     Route: 048

REACTIONS (2)
  - ANGINA PECTORIS [None]
  - FATIGUE [None]
